FAERS Safety Report 13202942 (Version 1)
Quarter: 2017Q1

REPORT INFORMATION
  Report Type: Spontaneous
  Country: IT (occurrence: IT)
  Receive Date: 20170209
  Receipt Date: 20170209
  Transmission Date: 20170428
  Serious: Yes (Hospitalization)
  Sender: FDA-Public Use
  Company Number: IT-ASTRAZENECA-2017SE12746

PATIENT
  Age: 17846 Day
  Sex: Female

DRUGS (5)
  1. METOPROLOL. [Concomitant]
     Active Substance: METOPROLOL
  2. TRIATEC [Concomitant]
     Active Substance: RAMIPRIL
  3. BRILIQUE [Suspect]
     Active Substance: TICAGRELOR
     Indication: ACUTE MYOCARDIAL INFARCTION
     Route: 048
  4. TOTALIP [Concomitant]
     Active Substance: ATORVASTATIN
  5. CARDIOASPIRIN [Suspect]
     Active Substance: ASPIRIN
     Indication: ACUTE MYOCARDIAL INFARCTION
     Route: 048

REACTIONS (5)
  - Ulcer haemorrhage [Unknown]
  - Nausea [Recovered/Resolved]
  - Haemorrhagic anaemia [Recovered/Resolved]
  - Melaena [Recovered/Resolved]
  - Vomiting [Recovered/Resolved]

NARRATIVE: CASE EVENT DATE: 20161217
